FAERS Safety Report 6474976-5 (Version None)
Quarter: 2009Q4

REPORT INFORMATION
  Report Type: 
  Country: None (occurrence: None)
  Receive Date: 20091204
  Receipt Date: 20090326
  Transmission Date: 20100525
  Serious: Yes (Hospitalization)
  Sender: FDA-Public Use
  Company Number: US-ELI_LILLY_AND_COMPANY-US200903006793

PATIENT
  Sex: Female

DRUGS (5)
  1. CYMBALTA [Suspect]
     Indication: PAIN
     Dosage: 120 MG, UNK
     Dates: end: 20090301
  2. CYMBALTA [Suspect]
     Dosage: 120 MG, 4/D
     Dates: start: 20090301, end: 20090301
  3. CYMBALTA [Suspect]
     Dosage: 1 D/F, UNK
     Dates: start: 20090301
  4. METHADONE [Concomitant]
  5. OXYCODONE HCL [Concomitant]

REACTIONS (6)
  - ACCIDENTAL OVERDOSE [None]
  - HALLUCINATION [None]
  - MEDICATION ERROR [None]
  - SOMNOLENCE [None]
  - URINARY RETENTION [None]
  - WOUND INFECTION [None]
